FAERS Safety Report 4475102-4 (Version None)
Quarter: 2004Q3

REPORT INFORMATION
  Report Type: 
  Country: None (occurrence: None)
  Receive Date: 20040923
  Receipt Date: 20040809
  Transmission Date: 20050211
  Serious: No
  Sender: FDA-Public Use
  Company Number: USA040875065

PATIENT
  Age: 54 Year
  Sex: Female

DRUGS (5)
  1. FORTEO [Suspect]
     Indication: OSTEOPOROSIS
     Dates: start: 20040805
  2. DARVOCET-N 100 [Concomitant]
  3. ULTRAM [Concomitant]
  4. TRAZADONE (TRAZODONE) [Concomitant]
  5. FLEXERIL [Concomitant]

REACTIONS (5)
  - FEELING ABNORMAL [None]
  - HEADACHE [None]
  - INFLUENZA LIKE ILLNESS [None]
  - INJECTION SITE DERMATITIS [None]
  - SENSORY DISTURBANCE [None]
